FAERS Safety Report 15884697 (Version 3)
Quarter: 2019Q1

REPORT INFORMATION
  Report Type: Spontaneous
  Country: US (occurrence: US)
  Receive Date: 20190129
  Receipt Date: 20190311
  Transmission Date: 20190417
  Serious: Yes (Other)
  Sender: FDA-Public Use
  Company Number: US-AMREGENT-20190097

PATIENT
  Age: 8 Year
  Sex: Female

DRUGS (11)
  1. VENOFER [Suspect]
     Active Substance: IRON SUCROSE
     Dosage: 245 MG/250 ML NS (7MG/KG)
     Route: 042
     Dates: start: 20190104, end: 20190104
  2. SENNA [Concomitant]
     Active Substance: SENNA LEAF\SENNOSIDES\SENNOSIDES A AND B
     Dosage: 45 MG CHEWED DAILY
     Route: 048
  3. FLUTICASONE. [Concomitant]
     Active Substance: FLUTICASONE
     Dosage: 2 PUFFS TWICE DAILY
     Route: 065
  4. FEXOFENADINE [Concomitant]
     Active Substance: FEXOFENADINE\FEXOFENADINE HYDROCHLORIDE
     Dosage: 5 ML ONCE DAILY
     Route: 048
  5. LANSOPRAZOLE. [Concomitant]
     Active Substance: LANSOPRAZOLE
     Dosage: 30 MG TWICE DAILY
     Route: 048
  6. OLOPATADINE OPHTHALMIC [Concomitant]
     Dosage: 1 DROP IN EACH EYE DAILY PRN
     Route: 047
  7. ALBUTEROL. [Concomitant]
     Active Substance: ALBUTEROL
     Dosage: 2 PUFFS AS NEEDED EVERY 4-6 H
     Route: 065
  8. ENALAPRIL [Concomitant]
     Active Substance: ENALAPRIL
     Dosage: 2.5 ML ONCE DAILY
     Route: 048
  9. GABAPENTIN. [Concomitant]
     Active Substance: GABAPENTIN
     Dosage: 1 TO 6 ML AT BEDTIME
     Route: 048
  10. MAGNESIUM HYDROXIDE. [Concomitant]
     Active Substance: MAGNESIUM HYDROXIDE
     Dosage: 2.4 G/30 ML ONCE DAILY
     Route: 065
  11. GUANFACINE. [Concomitant]
     Active Substance: GUANFACINE
     Dosage: 1 MG THREE TIMES DAILY
     Route: 048

REACTIONS (18)
  - Nausea [Unknown]
  - Somnolence [Unknown]
  - Product use in unapproved indication [Unknown]
  - Incorrect product administration duration [Unknown]
  - Erythema [Unknown]
  - Discomfort [Unknown]
  - Flushing [Unknown]
  - Urticaria [Unknown]
  - Abdominal discomfort [Unknown]
  - Livedo reticularis [Unknown]
  - Cough [Unknown]
  - Gastritis [Unknown]
  - Product preparation issue [Unknown]
  - Tachycardia [Unknown]
  - Incorrect dose administered [Unknown]
  - Abdominal pain [Unknown]
  - Vomiting [Unknown]
  - Hypotension [Unknown]

NARRATIVE: CASE EVENT DATE: 20190104
